FAERS Safety Report 4647470-1 (Version None)
Quarter: 2005Q2

REPORT INFORMATION
  Report Type: 
  Country: None (occurrence: None)
  Receive Date: 20050426
  Receipt Date: 20050411
  Transmission Date: 20051028
  Serious: Yes (Life-Threatening)
  Sender: FDA-Public Use
  Company Number: RENA-11341

PATIENT
  Age: 58 Year
  Sex: Male

DRUGS (7)
  1. RENAGEL [Suspect]
     Indication: HYPERPHOSPHATAEMIA
     Dates: start: 20041227, end: 20041229
  2. NEORECORMON [Concomitant]
  3. FOLACIN [Concomitant]
  4. ALVEDON [Concomitant]
  5. ORALVITE [Concomitant]
  6. KALCIDON [Concomitant]
  7. ETALPHA [Concomitant]

REACTIONS (7)
  - ABDOMINAL PAIN UPPER [None]
  - BLOOD PRESSURE INCREASED [None]
  - HAEMOLYSIS [None]
  - HEADACHE [None]
  - HYPERHIDROSIS [None]
  - MUSCLE SPASMS [None]
  - PROCEDURAL COMPLICATION [None]
